FAERS Safety Report 25945954 (Version 1)
Quarter: 2025Q4

REPORT INFORMATION
  Report Type: Spontaneous
  Country: AU (occurrence: AU)
  Receive Date: 20251021
  Receipt Date: 20251021
  Transmission Date: 20260117
  Serious: Yes (Life-Threatening, Other)
  Sender: SANDOZ
  Company Number: AU-002147023-NVSC2025AU108058

PATIENT
  Sex: Male
  Weight: 89 kg

DRUGS (2)
  1. RITALIN LA [Suspect]
     Active Substance: METHYLPHENIDATE HYDROCHLORIDE
     Indication: Attention deficit hyperactivity disorder
     Dosage: 60 MG
     Route: 048
  2. PRISTIQ EXTENDED-RELEASE [Concomitant]
     Active Substance: DESVENLAFAXINE SUCCINATE
     Indication: Depression
     Dosage: 300 MG
     Route: 048

REACTIONS (8)
  - Depression [Recovering/Resolving]
  - Mental impairment [Unknown]
  - Suicidal ideation [Recovering/Resolving]
  - Malaise [Recovered/Resolved with Sequelae]
  - Disturbance in attention [Recovering/Resolving]
  - Irritability [Recovered/Resolved]
  - Confusional state [Recovering/Resolving]
  - Product availability issue [Recovered/Resolved with Sequelae]
